FAERS Safety Report 23743492 (Version 2)
Quarter: 2025Q2

REPORT INFORMATION
  Report Type: Report from Study
  Country: FR (occurrence: FR)
  Receive Date: 20240415
  Receipt Date: 20250408
  Transmission Date: 20250717
  Serious: Yes (Life-Threatening, Hospitalization)
  Sender: NOVARTIS
  Company Number: None

PATIENT
  Age: 53 Year
  Sex: Female
  Weight: 56 kg

DRUGS (2)
  1. VIJOICE [Suspect]
     Active Substance: ALPELISIB
     Indication: Cytogenetic abnormality
     Dosage: 250 MG, QD
     Route: 048
     Dates: start: 20220127, end: 20240131
  2. VIJOICE [Suspect]
     Active Substance: ALPELISIB
     Indication: PIK3CA related overgrowth spectrum

REACTIONS (11)
  - Insulin resistance [Recovered/Resolved]
  - Thirst [Unknown]
  - Polyuria [Unknown]
  - Diabetic hyperosmolar coma [Recovered/Resolved]
  - Pyrexia [Unknown]
  - Psychomotor retardation [Unknown]
  - Disturbance in attention [Unknown]
  - Hyperglycaemic hyperosmolar nonketotic syndrome [Recovering/Resolving]
  - Clonus [Unknown]
  - Irregular breathing [Unknown]
  - Acidosis [Recovering/Resolving]

NARRATIVE: CASE EVENT DATE: 20240101
